FAERS Safety Report 6107758-4 (Version None)
Quarter: 2009Q1

REPORT INFORMATION
  Report Type: 
  Country: None (occurrence: None)
  Receive Date: 20090309
  Receipt Date: 20090304
  Transmission Date: 20090719
  Serious: Yes (Death)
  Sender: FDA-Public Use
  Company Number: A0772135A

PATIENT
  Age: 77 Year
  Sex: Female
  Weight: 60 kg

DRUGS (3)
  1. SERETIDE [Suspect]
     Indication: BRONCHITIS
     Route: 055
     Dates: start: 20070701, end: 20081021
  2. ASPIRIN [Concomitant]
     Dates: start: 20050101, end: 20081021
  3. ANCORON [Concomitant]
     Dates: start: 20050101, end: 20081021

REACTIONS (1)
  - LEUKAEMIA [None]
